FAERS Safety Report 5810173-1 (Version None)
Quarter: 2008Q3

REPORT INFORMATION
  Report Type: 
  Country: None (occurrence: None)
  Receive Date: 20080715
  Receipt Date: 20070913
  Transmission Date: 20090109
  Serious: No
  Sender: FDA-Public Use
  Company Number: A0681829A

PATIENT
  Age: 19 Year
  Sex: Male

DRUGS (3)
  1. IMITREX [Suspect]
     Indication: MIGRAINE
     Dosage: 100MG SINGLE DOSE
     Route: 048
     Dates: start: 20070911, end: 20070911
  2. LIPITOR [Concomitant]
  3. BENAZEPRIL HYDROCHLORIDE [Concomitant]

REACTIONS (3)
  - CHEST PAIN [None]
  - DIZZINESS [None]
  - MUSCLE TIGHTNESS [None]
